FAERS Safety Report 25324412 (Version 5)
Quarter: 2025Q3

REPORT INFORMATION
  Report Type: Spontaneous
  Country: PR (occurrence: PR)
  Receive Date: 20250516
  Receipt Date: 20250708
  Transmission Date: 20251021
  Serious: No
  Sender: PFIZER
  Company Number: PR-PFIZER INC-202500098021

PATIENT
  Age: 8 Year
  Sex: Male

DRUGS (1)
  1. GENOTROPIN [Suspect]
     Active Substance: SOMATROPIN
     Dosage: 0.8 MG, DAILY
     Dates: start: 202501

REACTIONS (3)
  - Device mechanical issue [Unknown]
  - Device physical property issue [Unknown]
  - Drug dose omission by device [Unknown]

NARRATIVE: CASE EVENT DATE: 20250526
